FAERS Safety Report 6422248-7 (Version None)
Quarter: 2009Q4

REPORT INFORMATION
  Report Type: 
  Country: None (occurrence: None)
  Receive Date: 20091030
  Receipt Date: 20091022
  Transmission Date: 20100525
  Serious: Yes (Hospitalization)
  Sender: FDA-Public Use
  Company Number: FR-TEVA-212548ISR

PATIENT

DRUGS (5)
  1. IRINOTECAN HCL [Suspect]
     Dates: start: 20090622
  2. FLUOROURACIL [Suspect]
     Route: 042
     Dates: start: 20090622
  3. FLUOROURACIL [Suspect]
     Route: 041
     Dates: start: 20090622
  4. FOLINIC ACID [Suspect]
     Dates: start: 20090622
  5. BEVACIZUMAB [Suspect]
     Dates: start: 20090622

REACTIONS (1)
  - COLITIS ISCHAEMIC [None]
